FAERS Safety Report 22223282 (Version 2)
Quarter: 2024Q2

REPORT INFORMATION
  Report Type: Report from Study
  Country: US (occurrence: US)
  Receive Date: 20230418
  Receipt Date: 20240620
  Transmission Date: 20240716
  Serious: Yes (Hospitalization, Other)
  Sender: FDA-Public Use
  Company Number: US-ABBVIE-4732195

PATIENT
  Age: 56 Year
  Sex: Female

DRUGS (2)
  1. HUMIRA [Suspect]
     Active Substance: ADALIMUMAB
     Indication: Rheumatoid arthritis
     Dosage: LAST ADMIN DATE- 2023
     Route: 058
     Dates: start: 20230330
  2. HUMIRA [Suspect]
     Active Substance: ADALIMUMAB
     Indication: Crohn^s disease
     Route: 057
     Dates: start: 2010, end: 2016

REACTIONS (6)
  - Crohn^s disease [Unknown]
  - Craniocerebral injury [Unknown]
  - Fall [Unknown]
  - Fear of injection [Unknown]
  - Asthenia [Unknown]
  - Skull fracture [Unknown]

NARRATIVE: CASE EVENT DATE: 20160118
